FAERS Safety Report 15128320 (Version 1)
Quarter: 2018Q3

REPORT INFORMATION
  Report Type: Spontaneous
  Country: US (occurrence: US)
  Receive Date: 20180711
  Receipt Date: 20180711
  Transmission Date: 20181010
  Serious: No
  Sender: FDA-Public Use
  Company Number: US-GLENMARK PHARMACEUTICALS-2017GMK029837

PATIENT

DRUGS (2)
  1. MUPIROCIN. [Suspect]
     Active Substance: MUPIROCIN
     Indication: THROMBOSIS
     Dosage: 1 DF, BID
     Route: 045
     Dates: start: 20171102, end: 20171116
  2. MUPIROCIN. [Suspect]
     Active Substance: MUPIROCIN
     Indication: WOUND

REACTIONS (5)
  - Breath odour [Unknown]
  - Incorrect route of drug administration [Unknown]
  - Drug effective for unapproved indication [Unknown]
  - Drug dispensing error [Unknown]
  - Dysgeusia [Unknown]

NARRATIVE: CASE EVENT DATE: 20171102
